FAERS Safety Report 16062248 (Version 1)
Quarter: 2019Q1

REPORT INFORMATION
  Report Type: Spontaneous
  Country: BR (occurrence: BR)
  Receive Date: 20190312
  Receipt Date: 20190312
  Transmission Date: 20190418
  Serious: Yes (Other)
  Sender: FDA-Public Use
  Company Number: BR-ROCHE-2280608

PATIENT
  Age: 57 Year
  Sex: Male

DRUGS (1)
  1. RIVOTRIL [Suspect]
     Active Substance: CLONAZEPAM
     Indication: ANXIETY
     Dosage: 2.5 NG/ML
     Route: 048

REACTIONS (12)
  - Tremor [Not Recovered/Not Resolved]
  - Syncope [Recovered/Resolved]
  - Tooth fracture [Unknown]
  - Gastritis erosive [Unknown]
  - Cervical vertebral fracture [Unknown]
  - Benign prostatic hyperplasia [Unknown]
  - Gait disturbance [Not Recovered/Not Resolved]
  - Loss of consciousness [Recovered/Resolved]
  - Depression [Not Recovered/Not Resolved]
  - Weight decreased [Unknown]
  - Insomnia [Unknown]
  - Lactose intolerance [Not Recovered/Not Resolved]

NARRATIVE: CASE EVENT DATE: 201806
